FAERS Safety Report 12988314 (Version 2)
Quarter: 2017Q1

REPORT INFORMATION
  Report Type: Report from Study
  Country: US (occurrence: US)
  Receive Date: 20161130
  Receipt Date: 20170103
  Transmission Date: 20170428
  Serious: Yes (Hospitalization)
  Sender: FDA-Public Use
  Company Number: US-EXELIXIS-CABO-16007601

PATIENT
  Age: 52 Year
  Sex: Female

DRUGS (4)
  1. DECADRON [Concomitant]
     Active Substance: DEXAMETHASONE
  2. MORPHINE SULFATE. [Concomitant]
     Active Substance: MORPHINE SULFATE
  3. MS CONTIN [Concomitant]
     Active Substance: MORPHINE SULFATE
  4. CABOMETYX [Suspect]
     Active Substance: CABOZANTINIB S-MALATE
     Indication: RENAL CANCER
     Dosage: 60 MG, QD
     Route: 048
     Dates: start: 2016, end: 2016

REACTIONS (3)
  - Wound infection [Unknown]
  - Drug intolerance [Unknown]
  - Drug dose omission [Unknown]

NARRATIVE: CASE EVENT DATE: 20161120
